FAERS Safety Report 5156169-7 (Version None)
Quarter: 2006Q4

REPORT INFORMATION
  Report Type: 
  Country: None (occurrence: None)
  Receive Date: 20061122
  Receipt Date: 20060818
  Transmission Date: 20070319
  Serious: Yes (Other)
  Sender: FDA-Public Use
  Company Number: US-ELI_LILLY_AND_COMPANY-US200608004274

PATIENT
  Age: 59 Year
  Sex: Female

DRUGS (4)
  1. CLONAZEPAM [Concomitant]
     Route: 061
  2. CYMBALTA [Suspect]
     Indication: DEPRESSION
     Dosage: 60 MG, UNK
     Dates: end: 20060810
  3. CYMBALTA [Suspect]
     Dosage: 30 MG, UNK
     Dates: start: 20060622
  4. LOVASTATIN [Concomitant]
     Dosage: 20 MG, UNK

REACTIONS (8)
  - CONTUSION [None]
  - DRUG INEFFECTIVE [None]
  - EYE DISORDER [None]
  - HEADACHE [None]
  - RETINAL DETACHMENT [None]
  - VISION BLURRED [None]
  - VISUAL ACUITY REDUCED [None]
  - VISUAL DISTURBANCE [None]
